FAERS Safety Report 8429813-6 (Version None)
Quarter: 2012Q2

REPORT INFORMATION
  Report Type: 
  Country: None (occurrence: None)
  Receive Date: 20120612
  Receipt Date: 20120530
  Transmission Date: 20120825
  Serious: Yes (Hospitalization)
  Sender: FDA-Public Use
  Company Number: PL-CELGENEUS-129-21880-12042398

PATIENT
  Sex: Male

DRUGS (9)
  1. ACID ACETYLSALICYLIC [Concomitant]
     Route: 065
     Dates: start: 20120321
  2. PAMIDRONATE DISODIUM [Concomitant]
     Route: 065
     Dates: start: 20090801
  3. DEXAMETHASONE [Suspect]
     Indication: MULTIPLE MYELOMA
     Route: 065
  4. ELOTUZUMAB [Suspect]
     Indication: MULTIPLE MYELOMA
     Route: 065
  5. KETOPROFEN [Concomitant]
     Route: 065
     Dates: start: 20101104
  6. OMEPRAZOLE [Concomitant]
     Route: 065
     Dates: start: 20120321
  7. REVLIMID [Suspect]
     Indication: MULTIPLE MYELOMA
     Route: 048
  8. RAMIPRIL [Concomitant]
     Route: 065
     Dates: start: 20100601
  9. INSULIN [Concomitant]
     Route: 065
     Dates: start: 20060101

REACTIONS (1)
  - HEMIPARESIS [None]
